FAERS Safety Report 5871498-7 (Version None)
Quarter: 2008Q3

REPORT INFORMATION
  Report Type: 
  Country: None (occurrence: None)
  Receive Date: 20080905
  Receipt Date: 20080228
  Transmission Date: 20090109
  Serious: No
  Sender: FDA-Public Use
  Company Number: A0712468A

PATIENT
  Age: 55 Year
  Sex: Female

DRUGS (4)
  1. REQUIP [Suspect]
     Indication: RESTLESS LEGS SYNDROME
     Dosage: .5MG PER DAY
     Route: 048
     Dates: start: 20070101
  2. PERCOCET [Concomitant]
  3. SYNTHROID [Concomitant]
  4. LODINE [Concomitant]

REACTIONS (2)
  - FEELING ABNORMAL [None]
  - INITIAL INSOMNIA [None]
